FAERS Safety Report 23470422 (Version 1)
Quarter: 2024Q1

REPORT INFORMATION
  Report Type: Spontaneous
  Country: FI (occurrence: None)
  Receive Date: 20240202
  Receipt Date: 20240202
  Transmission Date: 20240410
  Serious: Yes (Life-Threatening, Other)
  Sender: FDA-Public Use
  Company Number: 2024A026422

PATIENT
  Age: 20 Year
  Sex: Female

DRUGS (6)
  1. QUETIAPINE FUMARATE [Suspect]
     Active Substance: QUETIAPINE FUMARATE
     Indication: Sleep disorder
     Dosage: HALF (12.5MG) ONCE A DAY
     Route: 048
     Dates: start: 20240126
  2. QUETIAPINE FUMARATE [Suspect]
     Active Substance: QUETIAPINE FUMARATE
     Indication: Anxiety
     Dosage: HALF (12.5MG) ONCE A DAY
     Route: 048
     Dates: start: 20240126
  3. ESCITALOPRAM [Suspect]
     Active Substance: ESCITALOPRAM OXALATE
     Indication: Anxiety
     Dosage: 10MG ONCE A DAY
     Route: 048
     Dates: start: 202208, end: 20240123
  4. ESCITALOPRAM [Suspect]
     Active Substance: ESCITALOPRAM OXALATE
     Indication: Depression
     Dosage: 10MG ONCE A DAY
     Route: 048
     Dates: start: 202208, end: 20240123
  5. ESCITALOPRAM [Suspect]
     Active Substance: ESCITALOPRAM OXALATE
     Indication: Depression
     Dosage: 1.5 TIMES A DAY (DOSE WAS INCREASED ON 24.1.2024)
     Route: 048
     Dates: start: 20240124
  6. ESCITALOPRAM [Suspect]
     Active Substance: ESCITALOPRAM OXALATE
     Indication: Anxiety
     Dosage: 1.5 TIMES A DAY (DOSE WAS INCREASED ON 24.1.2024)
     Route: 048
     Dates: start: 20240124

REACTIONS (14)
  - Suicide attempt [Unknown]
  - Self-injurious ideation [Unknown]
  - Heart rate irregular [Unknown]
  - Tremor [Unknown]
  - Decreased appetite [Unknown]
  - Hyperhidrosis [Unknown]
  - Dizziness [Unknown]
  - Nausea [Unknown]
  - Abnormal dreams [Unknown]
  - Visual impairment [Unknown]
  - Movement disorder [Unknown]
  - Asthenia [Unknown]
  - Headache [Unknown]
  - Somnolence [Unknown]

NARRATIVE: CASE EVENT DATE: 20220101
